FAERS Safety Report 11788994 (Version 1)
Quarter: 2015Q4

REPORT INFORMATION
  Report Type: Spontaneous
  Country: AU (occurrence: None)
  Receive Date: 20151130
  Receipt Date: 20151130
  Transmission Date: 20160305
  Serious: Yes (Other)
  Sender: FDA-Public Use
  Company Number: None

PATIENT
  Age: 30 Year
  Sex: Female
  Weight: 56 kg

DRUGS (1)
  1. EPIDUO [Suspect]
     Active Substance: ADAPALENE\BENZOYL PEROXIDE
     Indication: SKIN DISCOLOURATION
     Route: 061
     Dates: start: 20151124, end: 20151126

REACTIONS (3)
  - Application site erythema [None]
  - Application site dryness [None]
  - Application site pain [None]

NARRATIVE: CASE EVENT DATE: 20151127
